FAERS Safety Report 10061732 (Version 1)
Quarter: 2014Q2

REPORT INFORMATION
  Report Type: Spontaneous
  Country: US (occurrence: None)
  Receive Date: 20140404
  Receipt Date: 20140404
  Transmission Date: 20141212
  Serious: Yes (Hospitalization)
  Sender: FDA-Public Use
  Company Number: None

PATIENT
  Age: 40 Year
  Sex: Female
  Weight: 78.93 kg

DRUGS (1)
  1. CIPROFLAXIN [Suspect]
     Indication: URINARY TRACT INFECTION
     Dosage: 10DAYS ONCE DAILY TAKEN BY MOUTH
     Route: 048
     Dates: start: 20110601, end: 20110620

REACTIONS (14)
  - Bladder spasm [None]
  - Intervertebral disc annular tear [None]
  - Intestinal obstruction [None]
  - Back pain [None]
  - Arthralgia [None]
  - Neuralgia [None]
  - Coccydynia [None]
  - Somnolence [None]
  - Memory impairment [None]
  - Suicide attempt [None]
  - Depression [None]
  - Cystitis interstitial [None]
  - Muscle disorder [None]
  - Pelvic pain [None]
